FAERS Safety Report 25339091 (Version 1)
Quarter: 2025Q2

REPORT INFORMATION
  Report Type: Spontaneous
  Country: US (occurrence: US)
  Receive Date: 20250521
  Receipt Date: 20250521
  Transmission Date: 20250717
  Serious: No
  Sender: AMNEAL
  Company Number: US-AMNEAL PHARMACEUTICALS-2025-AMRX-01466

PATIENT
  Sex: Male

DRUGS (3)
  1. CREXONT [Suspect]
     Active Substance: CARBIDOPA\LEVODOPA
     Indication: Parkinson^s disease
     Dosage: 1 CAPSULES, (70/280M) 2 /DAY
     Route: 048
     Dates: start: 20250123
  2. CREXONT [Suspect]
     Active Substance: CARBIDOPA\LEVODOPA
     Dosage: 1 CAPSULES, (70/280M) 3 /DAY
     Route: 048
     Dates: start: 20250225
  3. CREXONT [Suspect]
     Active Substance: CARBIDOPA\LEVODOPA
     Dosage: 1 CAPSULES, (70/280MG) 2 /DAY
     Route: 048
     Dates: start: 20250328

REACTIONS (6)
  - Chest pain [Recovered/Resolved]
  - Asthenia [Recovering/Resolving]
  - Feeling abnormal [None]
  - Drug intolerance [Recovered/Resolved]
  - Dyskinesia [Recovering/Resolving]
  - Product substitution issue [Unknown]
